FAERS Safety Report 11724296 (Version 1)
Quarter: 2015Q4

REPORT INFORMATION
  Report Type: Report from Study
  Country: IL (occurrence: IL)
  Receive Date: 20151111
  Receipt Date: 20151111
  Transmission Date: 20160304
  Serious: Yes (Death)
  Sender: FDA-Public Use
  Company Number: PHHY2015IL146758

PATIENT
  Sex: Female
  Weight: 74 kg

DRUGS (1)
  1. TASIGNA [Suspect]
     Active Substance: NILOTINIB
     Indication: CHRONIC MYELOID LEUKAEMIA
     Dosage: 600 MG, QD (400 MG AT MORNING AND 200 MG AT EVENING)
     Route: 048
     Dates: start: 201301

REACTIONS (1)
  - Death [Fatal]
